FAERS Safety Report 6064797-X (Version None)
Quarter: 2009Q1

REPORT INFORMATION
  Report Type: 
  Country: None (occurrence: None)
  Receive Date: 20090203
  Receipt Date: 20090203
  Transmission Date: 20090719
  Serious: Yes (Hospitalization)
  Sender: FDA-Public Use
  Company Number: None

PATIENT
  Age: 50 Year
  Sex: Female
  Weight: 105.1 kg

DRUGS (12)
  1. TARCEVA [Suspect]
     Indication: ENDOMETRIAL CANCER STAGE IV
     Dosage: 150 MG DAILY PO
     Route: 048
     Dates: start: 20090115, end: 20090128
  2. VIDAZA [Suspect]
     Indication: ENDOMETRIAL CANCER STAGE IV
     Dosage: 170 MG DAY 1, 2 DAY 15, 16 IV
     Route: 042
     Dates: start: 20090115, end: 20090116
  3. CLONIDINE HCL [Concomitant]
  4. ZOMETA [Concomitant]
  5. OXYCODONE HCL [Concomitant]
  6. BENADRYL [Concomitant]
  7. PEPCID [Concomitant]
  8. COMPAZINE [Concomitant]
  9. GLUCOSAMINE [Concomitant]
  10. CYMBALTA [Concomitant]
  11. MULTI-VITAMIN [Concomitant]
  12. TYLENOL [Concomitant]

REACTIONS (9)
  - ASTHENIA [None]
  - BACK PAIN [None]
  - BLOOD CALCIUM INCREASED [None]
  - BLOOD PRESSURE ABNORMAL [None]
  - LABORATORY TEST ABNORMAL [None]
  - MENTAL STATUS CHANGES [None]
  - MOVEMENT DISORDER [None]
  - SPEECH DISORDER [None]
  - XANTHOPSIA [None]
